FAERS Safety Report 4436164-3 (Version None)
Quarter: 2004Q3

REPORT INFORMATION
  Report Type: 
  Country: None (occurrence: None)
  Receive Date: 20040830
  Receipt Date: 20040419
  Transmission Date: 20050211
  Serious: Yes (Other)
  Sender: FDA-Public Use
  Company Number: US-BRISTOL-MYERS SQUIBB COMPANY-12564548

PATIENT
  Age: 64 Year
  Sex: Female
  Weight: 74 kg

DRUGS (2)
  1. ERBITUX [Suspect]
     Indication: COLON CANCER
     Dosage: LOADING DOSE; STOPPED, RATE DECREASED. THERAPY CONTINUES AT 250 MG/M2=446 MG WEEKLY
     Route: 042
     Dates: start: 20040416, end: 20040416
  2. BENADRYL [Concomitant]
     Indication: PREMEDICATION
     Route: 042
     Dates: start: 20040416, end: 20040416

REACTIONS (2)
  - CHILLS [None]
  - PYREXIA [None]
